FAERS Safety Report 9130308 (Version 1)
Quarter: 2013Q1

REPORT INFORMATION
  Report Type: Spontaneous
  Country: US (occurrence: US)
  Receive Date: 20130228
  Receipt Date: 20130228
  Transmission Date: 20140127
  Serious: Yes (Death)
  Sender: FDA-Public Use
  Company Number: CHPA2013US003682

PATIENT
  Age: 92 Year
  Sex: Male

DRUGS (1)
  1. BENEFIBER W/ WHEAT DEXTRIN [Suspect]
     Indication: SUPPLEMENTATION THERAPY
     Dosage: 2 TSP, QD
     Route: 048

REACTIONS (4)
  - Death [Fatal]
  - Constipation [Unknown]
  - Therapeutic response unexpected [Unknown]
  - Underdose [Unknown]
